FAERS Safety Report 25507570 (Version 1)
Quarter: 2025Q3

REPORT INFORMATION
  Report Type: Spontaneous
  Country: EU (occurrence: EU)
  Receive Date: 20250703
  Receipt Date: 20250703
  Transmission Date: 20251021
  Serious: Yes (Other)
  Sender: ROCHE
  Company Number: EU-ROCHE-10000321630

PATIENT
  Age: 68 Year
  Sex: Male

DRUGS (1)
  1. AVASTIN [Suspect]
     Active Substance: BEVACIZUMAB
     Indication: Ependymoma
     Route: 065
     Dates: start: 20240723

REACTIONS (6)
  - Off label use [Unknown]
  - General physical health deterioration [Unknown]
  - Paraplegia [Unknown]
  - Quadriplegia [Unknown]
  - Neurofibromatosis [Unknown]
  - Ependymoma [Unknown]
